FAERS Safety Report 14120804 (Version 1)
Quarter: 2017Q4

REPORT INFORMATION
  Report Type: Spontaneous
  Country: NL (occurrence: NL)
  Receive Date: 20171024
  Receipt Date: 20171024
  Transmission Date: 20180321
  Serious: Yes (Other)
  Sender: FDA-Public Use
  Company Number: NL-TEVA-816459ACC

PATIENT
  Sex: Female

DRUGS (2)
  1. COLECALCIFEROL [Concomitant]
     Active Substance: CHOLECALCIFEROL
     Route: 048
  2. LAMOTRIGINE. [Suspect]
     Active Substance: LAMOTRIGINE
     Indication: EPILEPSY
     Dosage: 4 DOSAGE FORMS DAILY;
     Route: 048
     Dates: start: 20170927, end: 20171005

REACTIONS (2)
  - Therapeutic response unexpected [Recovered/Resolved with Sequelae]
  - Epilepsy [Recovered/Resolved with Sequelae]
